FAERS Safety Report 9753197 (Version 1)
Quarter: 2013Q4

REPORT INFORMATION
  Report Type: Spontaneous
  Country: US (occurrence: US)
  Receive Date: 20131213
  Receipt Date: 20131213
  Transmission Date: 20140711
  Serious: No
  Sender: FDA-Public Use
  Company Number: US-GILEAD-2010-0027346

PATIENT
  Age: 65 Year
  Sex: Female
  Weight: 72.5 kg

DRUGS (8)
  1. LETAIRIS [Suspect]
     Indication: PULMONARY ARTERIAL HYPERTENSION
     Route: 048
     Dates: start: 20100203, end: 20100220
  2. FUROSEMIDE [Concomitant]
  3. METFORMIN [Concomitant]
  4. GLYBURIDE [Concomitant]
  5. LUNESTA [Concomitant]
  6. ASPIRIN [Concomitant]
  7. SINGULAIR [Concomitant]
  8. ALBUTEROL [Concomitant]

REACTIONS (4)
  - Lethargy [Not Recovered/Not Resolved]
  - Headache [Not Recovered/Not Resolved]
  - Oropharyngeal pain [Not Recovered/Not Resolved]
  - Oedema peripheral [Not Recovered/Not Resolved]
